FAERS Safety Report 15652885 (Version 3)
Quarter: 2019Q1

REPORT INFORMATION
  Report Type: Spontaneous
  Country: ZA (occurrence: ZA)
  Receive Date: 20181123
  Receipt Date: 20190128
  Transmission Date: 20190417
  Serious: Yes (Hospitalization)
  Sender: FDA-Public Use
  Company Number: PHHY2018ZA158806

PATIENT
  Sex: Female

DRUGS (1)
  1. GLAUCOSAN [Suspect]
     Active Substance: TIMOLOL MALEATE
     Indication: GLAUCOMA
     Dosage: 1 DF, UNK
     Route: 047
     Dates: start: 201808

REACTIONS (2)
  - Abdominal discomfort [Unknown]
  - Hernia [Recovering/Resolving]
